FAERS Safety Report 15455237 (Version 4)
Quarter: 2018Q4

REPORT INFORMATION
  Report Type: Spontaneous
  Country: AR (occurrence: AR)
  Receive Date: 20181002
  Receipt Date: 20181031
  Transmission Date: 20190204
  Serious: Yes (Other)
  Sender: FDA-Public Use
  Company Number: AR-PFIZER INC-2018391171

PATIENT
  Age: 54 Year
  Sex: Female

DRUGS (5)
  1. FLUOROURACIL 5 FU [Suspect]
     Active Substance: FLUOROURACIL
     Indication: PANCREATIC CARCINOMA
     Dosage: 400 MG/M2, CYCLIC (BOLUS)
  2. FOLINIC ACID [Suspect]
     Active Substance: LEUCOVORIN
     Indication: PANCREATIC CARCINOMA
     Dosage: 400 MG/M2, CYCLIC (EVERY TWO WEEKS)
  3. FLUOROURACIL 5 FU [Suspect]
     Active Substance: FLUOROURACIL
     Dosage: 2400 MG/M2, CYCLIC (OVER 46 HOURS AS A CONTINUOUS INFUSION EVERY TWO WEEKS)
  4. IRINOTECAN HCL [Suspect]
     Active Substance: IRINOTECAN HYDROCHLORIDE
     Indication: PANCREATIC CARCINOMA
     Dosage: 180 MG/M2, CYCLIC(EVERY TWO WEEKS )
  5. OXALIPLATIN. [Suspect]
     Active Substance: OXALIPLATIN
     Indication: PANCREATIC CARCINOMA
     Dosage: 85 MG/M2, CYCLIC (EVERY TWO WEEKS)

REACTIONS (1)
  - Dysarthria [Recovered/Resolved]
